FAERS Safety Report 11878333 (Version 1)
Quarter: 2015Q4

REPORT INFORMATION
  Report Type: Spontaneous
  Country: US (occurrence: None)
  Receive Date: 20151229
  Receipt Date: 20151229
  Transmission Date: 20160305
  Serious: Yes (Hospitalization)
  Sender: FDA-Public Use
  Company Number: None

PATIENT
  Age: 66 Year
  Sex: Male
  Weight: 85.9 kg

DRUGS (1)
  1. ERTAPENEM [Suspect]
     Active Substance: ERTAPENEM
     Indication: OSTEOMYELITIS
     Dosage: 1 GM EVERY DAY IV
     Route: 042
     Dates: start: 20151215, end: 20151220

REACTIONS (1)
  - Seizure [None]

NARRATIVE: CASE EVENT DATE: 20151220
